FAERS Safety Report 5883193-9 (Version None)
Quarter: 2008Q3

REPORT INFORMATION
  Report Type: 
  Country: None (occurrence: None)
  Receive Date: 20080915
  Receipt Date: 20080903
  Transmission Date: 20090109
  Serious: Yes (Hospitalization)
  Sender: FDA-Public Use
  Company Number: PHHO2007US12908

PATIENT
  Sex: Female
  Weight: 49 kg

DRUGS (6)
  1. BLINDED FTY 720 FTY+CAP [Suspect]
     Indication: MULTIPLE SCLEROSIS
     Dosage: CODE NOT BROKEN
     Route: 048
     Dates: start: 20070515, end: 20070728
  2. BLINDED NO TREATMENT RECEIVED NOMED [Suspect]
     Indication: MULTIPLE SCLEROSIS
     Dosage: CODE NOT BROKEN
     Route: 048
     Dates: start: 20070515, end: 20070728
  3. BLINDED PLACEBO COMP-PLA+ [Suspect]
     Indication: MULTIPLE SCLEROSIS
     Dosage: CODE NOT BROKEN
     Route: 048
     Dates: start: 20070515, end: 20070728
  4. TRILEPTAL [Suspect]
     Indication: PAIN
  5. ATACAND [Concomitant]
     Indication: HYPERTENSION
  6. PROVIGIL [Concomitant]
     Indication: FATIGUE

REACTIONS (3)
  - CYSTITIS [None]
  - HYPONATRAEMIA [None]
  - POLLAKIURIA [None]
